FAERS Safety Report 13539041 (Version 1)
Quarter: 2017Q2

REPORT INFORMATION
  Report Type: Spontaneous
  Country: US (occurrence: US)
  Receive Date: 20170511
  Receipt Date: 20170511
  Transmission Date: 20170830
  Serious: No
  Sender: FDA-Public Use
  Company Number: None

PATIENT
  Age: 44 Year
  Sex: Male

DRUGS (1)
  1. SUBOXONE [Suspect]
     Active Substance: BUPRENORPHINE HYDROCHLORIDE\NALOXONE HYDROCHLORIDE
     Indication: DRUG USE DISORDER
     Dosage: 8/2MG TAB S.L. TID
     Route: 060
     Dates: start: 20170315, end: 20170329

REACTIONS (5)
  - Insomnia [None]
  - Pain [None]
  - Flatulence [None]
  - Food craving [None]
  - Rash [None]

NARRATIVE: CASE EVENT DATE: 20170315
